FAERS Safety Report 19298496 (Version 1)
Quarter: 2021Q2

REPORT INFORMATION
  Report Type: Spontaneous
  Country: CA (occurrence: CA)
  Receive Date: 20210525
  Receipt Date: 20210525
  Transmission Date: 20210717
  Serious: Yes (Hospitalization)
  Sender: FDA-Public Use
  Company Number: CA-MTPC-MTDA2021-0012399

PATIENT
  Age: 53 Year
  Sex: Male

DRUGS (1)
  1. RADICAVA [Suspect]
     Active Substance: EDARAVONE
     Indication: AMYOTROPHIC LATERAL SCLEROSIS
     Dosage: 60 MILLIGRAM
     Route: 042

REACTIONS (8)
  - Hypokinesia [Unknown]
  - Pancreatic carcinoma [Unknown]
  - Condition aggravated [Unknown]
  - Poor venous access [Unknown]
  - Hypotension [Unknown]
  - Transient ischaemic attack [Unknown]
  - Hepatic enzyme increased [Unknown]
  - Device issue [Unknown]
